FAERS Safety Report 7103453 (Version 2)
Quarter: 2025Q2

REPORT INFORMATION
  Report Type: Spontaneous
  Country: TR (occurrence: TR)
  Receive Date: 20090902
  Receipt Date: 20250620
  Transmission Date: 20250717
  Serious: Yes (Other)
  Sender: PFIZER
  Company Number: TR-PFIZER INC-2009229671

PATIENT
  Age: 78 Year
  Sex: Female

DRUGS (1)
  1. CABERGOLINE [Suspect]
     Active Substance: CABERGOLINE
     Indication: Parkinson^s disease

REACTIONS (2)
  - Pulmonary toxicity [Recovering/Resolving]
  - Off label use [Unknown]
